FAERS Safety Report 10039328 (Version 1)
Quarter: 2014Q1

REPORT INFORMATION
  Report Type: Spontaneous
  Country: US (occurrence: None)
  Receive Date: 20140318
  Receipt Date: 20140318
  Transmission Date: 20141002
  Serious: Yes (Other)
  Sender: FDA-Public Use
  Company Number: 2013CT000119

PATIENT
  Age: 61 Year
  Sex: Female
  Weight: 113.4 kg

DRUGS (10)
  1. KORLYM [Suspect]
     Indication: CUSHING^S SYNDROME
     Route: 048
     Dates: start: 20131211
  2. AMOXICILLIN [Concomitant]
  3. LEVOTHYROXINE [Concomitant]
  4. BUSPAR [Concomitant]
  5. ASPIRIN [Concomitant]
  6. ZOSYN [Concomitant]
  7. LANTUS [Concomitant]
  8. HUMULIN [Concomitant]
  9. CYMBALTA [Concomitant]
  10. CRESTOR [Concomitant]

REACTIONS (5)
  - Fatigue [None]
  - Nausea [None]
  - Vomiting [None]
  - Headache [None]
  - Faeces discoloured [None]
